FAERS Safety Report 4514670-0 (Version None)
Quarter: 2004Q4

REPORT INFORMATION
  Report Type: 
  Country: None (occurrence: None)
  Receive Date: 20041126
  Receipt Date: 20041111
  Transmission Date: 20050328
  Serious: Yes (Other)
  Sender: FDA-Public Use
  Company Number: 2004-00831

PATIENT
  Sex: Male

DRUGS (1)
  1. VELCADE [Suspect]

REACTIONS (1)
  - DRUG WITHDRAWAL SYNDROME [None]
